FAERS Safety Report 22085531 (Version 2)
Quarter: 2023Q2

REPORT INFORMATION
  Report Type: Spontaneous
  Country: US (occurrence: US)
  Receive Date: 20230310
  Receipt Date: 20230510
  Transmission Date: 20230722
  Serious: Yes (Other)
  Sender: FDA-Public Use
  Company Number: US-PFIZER INC-PV202300044132

PATIENT
  Age: 85 Year
  Sex: Female

DRUGS (1)
  1. IBRANCE [Suspect]
     Active Substance: PALBOCICLIB
     Dosage: 100 MG

REACTIONS (8)
  - Glaucoma [Unknown]
  - Urinary tract disorder [Unknown]
  - Hyperlipidaemia [Unknown]
  - Hypertension [Unknown]
  - Cardiac murmur [Unknown]
  - Anaemia [Unknown]
  - Vitamin B complex deficiency [Unknown]
  - Memory impairment [Unknown]
